FAERS Safety Report 4668630-X (Version None)
Quarter: 2005Q2

REPORT INFORMATION
  Report Type: 
  Country: None (occurrence: None)
  Receive Date: 20050519
  Receipt Date: 20050512
  Transmission Date: 20051028
  Serious: Yes (Life-Threatening, Hospitalization, Disabling, Other)
  Sender: FDA-Public Use
  Company Number: 2005062758

PATIENT
  Age: 70 Year
  Sex: Female
  Weight: 67.586 kg

DRUGS (1)
  1. ACCUPRIL [Suspect]
     Indication: HYPERTENSION
     Dosage: 20 MG (20 MG, 1 IN 1 D), ORAL      2 YEARS AGO
     Route: 048

REACTIONS (8)
  - BACK PAIN [None]
  - CHEST PAIN [None]
  - CHOLELITHIASIS [None]
  - DIZZINESS [None]
  - HEART RATE INCREASED [None]
  - HYDROCHOLECYSTIS [None]
  - HYPOTENSION [None]
  - SLUGGISHNESS [None]
